FAERS Safety Report 24900822 (Version 1)
Quarter: 2025Q1

REPORT INFORMATION
  Report Type: Report from Study
  Country: US (occurrence: US)
  Receive Date: 20250129
  Receipt Date: 20250129
  Transmission Date: 20250409
  Serious: No
  Sender: ROCHE
  Company Number: US-ROCHE-10000153512

PATIENT
  Age: 57 Year
  Sex: Female
  Weight: 86.18 kg

DRUGS (2)
  1. OCREVUS [Suspect]
     Active Substance: OCRELIZUMAB
     Indication: Relapsing multiple sclerosis
     Dosage: ONCE ON DAY 1 AND , ONCE 2 WEEK.   DATE OF TREATMENT: 06/DEC/2024.  DATE OF TREATMENT ADDED AS 20-DE
     Route: 065
     Dates: start: 20241206
  2. MODAFINIL [Concomitant]
     Active Substance: MODAFINIL

REACTIONS (6)
  - Nausea [Recovered/Resolved]
  - Fatigue [Recovered/Resolved]
  - Ill-defined disorder [Recovered/Resolved]
  - Road traffic accident [Unknown]
  - Rash macular [Unknown]
  - Influenza [Unknown]

NARRATIVE: CASE EVENT DATE: 20241206
